FAERS Safety Report 4489039-8 (Version None)
Quarter: 2004Q4

REPORT INFORMATION
  Report Type: 
  Country: None (occurrence: None)
  Receive Date: 20041027
  Receipt Date: 20040623
  Transmission Date: 20050328
  Serious: Yes (Hospitalization)
  Sender: FDA-Public Use
  Company Number: CIO01015544

PATIENT
  Age: 4 Year
  Sex: Female
  Weight: 16.8 kg

DRUGS (1)
  1. VAPORUB (CEDAR LEAF OIL, TURPENTINE OIL, CEDAR WOOD OIL, EUCALYPTUS OI [Suspect]
     Indication: NASOPHARYNGITIS
     Dosage: 60 G, 1 ONLY FOR 1 DAY, ORAL
     Route: 048
     Dates: start: 20011019, end: 20011019

REACTIONS (10)
  - ACCIDENTAL EXPOSURE [None]
  - COUGH [None]
  - DEPRESSED LEVEL OF CONSCIOUSNESS [None]
  - DIARRHOEA [None]
  - DIZZINESS [None]
  - DRUG TOXICITY [None]
  - EYE DISORDER [None]
  - FEELING ABNORMAL [None]
  - GRAND MAL CONVULSION [None]
  - VOMITING [None]
